FAERS Safety Report 12713086 (Version 2)
Quarter: 2016Q3

REPORT INFORMATION
  Report Type: Report from Study
  Country: BR (occurrence: BR)
  Receive Date: 20160902
  Receipt Date: 20160909
  Transmission Date: 20161109
  Serious: Yes (Death, Hospitalization, Other)
  Sender: FDA-Public Use
  Company Number: BR-ABBVIE-16K-020-1714917-00

PATIENT
  Age: 76 Year
  Sex: Male
  Weight: 64 kg

DRUGS (1)
  1. HUMIRA [Suspect]
     Active Substance: ADALIMUMAB
     Indication: PSORIATIC ARTHROPATHY
     Route: 058
     Dates: start: 20160614

REACTIONS (9)
  - Cardiac arrest [Fatal]
  - Blood pressure decreased [Unknown]
  - Renal failure [Unknown]
  - Pneumonia [Unknown]
  - Stomatitis [Unknown]
  - Hypoglycaemia [Unknown]
  - Immunodeficiency [Unknown]
  - Hypophagia [Unknown]
  - Candida infection [Unknown]

NARRATIVE: CASE EVENT DATE: 2016
